FAERS Safety Report 9311206 (Version 4)
Quarter: 2014Q1

REPORT INFORMATION
  Report Type: Report from Study
  Country: FR (occurrence: FR)
  Receive Date: 20130528
  Receipt Date: 20140110
  Transmission Date: 20141002
  Serious: Yes (Hospitalization)
  Sender: FDA-Public Use
  Company Number: FR-MILLENNIUM PHARMACEUTICALS, INC.-2013-03843

PATIENT
  Sex: 0

DRUGS (35)
  1. VELCADE [Suspect]
     Indication: PLASMA CELL MYELOMA
     Dosage: UNK
     Route: 065
     Dates: start: 20121016, end: 20121223
  2. REVLIMID [Concomitant]
     Indication: PLASMA CELL MYELOMA
     Dosage: UNK
     Dates: start: 20121016, end: 20130423
  3. DEXAMETHASONE [Concomitant]
     Indication: PLASMA CELL MYELOMA
     Dosage: UNK
     Dates: start: 20121016, end: 20130423
  4. ZOMETA [Concomitant]
     Dosage: UNK
     Dates: start: 20121016
  5. ALDACTAZINE [Concomitant]
  6. TAHOR [Concomitant]
  7. KARDEGIC [Concomitant]
  8. MATRIFEN [Concomitant]
     Dosage: UNK
     Dates: start: 20121016
  9. INSTANYL [Concomitant]
     Dosage: UNK
     Dates: start: 20121016
  10. TRAMADOL [Concomitant]
     Dosage: UNK
     Dates: start: 20121118
  11. ZELITREX [Concomitant]
     Dosage: UNK
     Dates: start: 20121118
  12. VERSATIS [Concomitant]
     Dosage: UNK
     Dates: start: 20121118
  13. DELURSAN [Concomitant]
     Dosage: UNK
     Dates: start: 20131001
  14. TIORFAN [Concomitant]
     Dosage: UNK
     Dates: start: 20131001
  15. CARDENSIEL [Concomitant]
     Dosage: UNK
     Dates: start: 20131001
  16. CORTANCYL [Concomitant]
     Dosage: UNK
     Dates: start: 20131001
  17. RAPAMUNE [Concomitant]
     Dosage: UNK
     Dates: start: 20131001
  18. ENTOCORT [Concomitant]
     Dosage: UNK
     Dates: start: 20131001
  19. PLITICAN [Concomitant]
     Dosage: UNK
     Dates: start: 20131001
  20. NOXAFIL [Concomitant]
     Dosage: UNK
     Dates: start: 20131001
  21. SYMBICORT [Concomitant]
     Dosage: UNK
     Dates: start: 20131001
  22. OLIMELT [Concomitant]
     Dosage: UNK
     Dates: start: 20131001
  23. CYMEVAN [Concomitant]
     Dosage: UNK
     Dates: start: 20130617
  24. ATARAX                             /00058401/ [Concomitant]
     Dosage: 25 MG, UNK
     Dates: start: 20130527
  25. CELLUVISC                          /00007002/ [Concomitant]
     Dosage: UNK
     Dates: start: 20130527
  26. CACIT                              /00751519/ [Concomitant]
     Dosage: UNK
     Dates: start: 20130527
  27. LEDERFOLINE [Concomitant]
     Dosage: UNK
     Dates: start: 20130527
  28. RAMIPRIL [Concomitant]
     Dosage: UNK
     Dates: start: 20130527
  29. INEXIUM                            /01479302/ [Concomitant]
     Dosage: UNK
     Dates: start: 20130527
  30. ORACILLINE                         /00001801/ [Concomitant]
     Dosage: UNK
     Dates: start: 20130527
  31. BACTRIM [Concomitant]
     Dosage: UNK
     Dates: start: 20130527
  32. TRIFLUCAN [Concomitant]
     Dosage: UNK
     Dates: start: 20130527
  33. BARACLUDE [Concomitant]
     Dosage: UNK
     Dates: start: 20130527
  34. FUNGIZONE [Concomitant]
     Dosage: UNK
     Dates: start: 20130527
  35. NEORAL [Concomitant]
     Dosage: UNK
     Dates: start: 20130527

REACTIONS (3)
  - Head injury [Recovered/Resolved]
  - Periorbital haematoma [Recovered/Resolved]
  - Hypotension [Recovered/Resolved]
